FAERS Safety Report 20656945 (Version 1)
Quarter: 2022Q1

REPORT INFORMATION
  Report Type: Report from Study
  Country: CN (occurrence: CN)
  Receive Date: 20220331
  Receipt Date: 20220331
  Transmission Date: 20220424
  Serious: Yes (Other)
  Sender: FDA-Public Use
  Company Number: CN-BRISTOL-MYERS SQUIBB COMPANY-2022-011107

PATIENT
  Age: 76 Year
  Sex: Male

DRUGS (2)
  1. OPDIVO [Suspect]
     Active Substance: NIVOLUMAB
     Indication: Gastric cancer
     Route: 041
     Dates: start: 20210626
  2. NIVOLUMAB\RELATLIMAB-RMBW [Suspect]
     Active Substance: NIVOLUMAB\RELATLIMAB-RMBW
     Indication: Gastric cancer
     Route: 041
     Dates: start: 20210626

REACTIONS (7)
  - Hypokalaemia [Recovering/Resolving]
  - Hypoglycaemia [Recovering/Resolving]
  - General physical health deterioration [Recovering/Resolving]
  - Dysstasia [Recovering/Resolving]
  - Gastrointestinal disorder [Recovering/Resolving]
  - Off label use [Unknown]
  - Off label use [Unknown]
